FAERS Safety Report 4725984-3 (Version None)
Quarter: 2005Q3

REPORT INFORMATION
  Report Type: 
  Country: None (occurrence: None)
  Receive Date: 20050727
  Receipt Date: 20050616
  Transmission Date: 20060218
  Serious: Yes (Other)
  Sender: FDA-Public Use
  Company Number: DE-GLAXOSMITHKLINE-D0046909A

PATIENT
  Age: 76 Year
  Sex: Female
  Weight: 61 kg

DRUGS (8)
  1. ALKERAN [Suspect]
     Dosage: 30MG SINGLE DOSE
     Route: 042
  2. SOLVENT DILUENT (FOR ALKERAN INJ) [Concomitant]
     Route: 042
  3. SODIUM CHLORIDE 0.9% [Concomitant]
     Dosage: 250ML SINGLE DOSE
     Route: 042
  4. DEXAMETHASONE [Concomitant]
     Dosage: 40MG SINGLE DOSE
     Route: 042
  5. SODIUM CHLORIDE 0.9% [Concomitant]
     Dosage: 500ML SINGLE DOSE
     Route: 042
  6. NOVODIGAL [Concomitant]
     Dosage: .2U IN THE MORNING
     Route: 065
  7. ISOPTIN [Concomitant]
     Dosage: 1U TWICE PER DAY
     Route: 065
  8. MARCUMAR [Concomitant]
     Route: 065

REACTIONS (5)
  - DERMATITIS ALLERGIC [None]
  - HYPERSENSITIVITY [None]
  - PHARMACEUTICAL PRODUCT COMPLAINT [None]
  - PRURITUS [None]
  - TREMOR [None]
